FAERS Safety Report 16762545 (Version 4)
Quarter: 2025Q4

REPORT INFORMATION
  Report Type: Spontaneous
  Country: US (occurrence: US)
  Receive Date: 20190831
  Receipt Date: 20251014
  Transmission Date: 20260118
  Serious: Yes (Death, Other)
  Sender: BRISTOL-MYERS SQUIBB COMPANY
  Company Number: US-BRISTOL-MYERS SQUIBB COMPANY-BMS-2019-084137

PATIENT
  Age: 72 Year
  Sex: Male
  Weight: 82.993 kg

DRUGS (6)
  1. OPDIVO [Suspect]
     Active Substance: NIVOLUMAB
     Indication: Lung neoplasm malignant
     Dosage: UNK, Q2WK
     Dates: start: 20190513, end: 20190610
  2. METOPROLOL [Concomitant]
     Active Substance: METOPROLOL
     Indication: Product used for unknown indication
  3. XARELTO [Concomitant]
     Active Substance: RIVAROXABAN
     Indication: Product used for unknown indication
     Dosage: UNK
  4. METFORMIN [Concomitant]
     Active Substance: METFORMIN HYDROCHLORIDE
     Indication: Product used for unknown indication
     Dosage: UNK
  5. LOSARTAN [Concomitant]
     Active Substance: LOSARTAN
     Indication: Product used for unknown indication
     Dosage: UNK
  6. OMEPRAZOLE [Concomitant]
     Active Substance: OMEPRAZOLE
     Indication: Product used for unknown indication

REACTIONS (11)
  - Blindness [Unknown]
  - Thyroid disorder [Unknown]
  - Pneumonitis [Fatal]
  - Myocarditis [Fatal]
  - Acute myocardial infarction [Fatal]
  - Non-small cell lung cancer [Fatal]
  - Myasthenia gravis [Unknown]
  - Diabetes mellitus [Unknown]
  - Drug-induced liver injury [Unknown]
  - Cardiac failure acute [Unknown]
  - Respiratory failure [Unknown]
